FAERS Safety Report 16205914 (Version 2)
Quarter: 2021Q1

REPORT INFORMATION
  Report Type: Report from Study
  Country: US (occurrence: US)
  Receive Date: 20190417
  Receipt Date: 20210223
  Transmission Date: 20210419
  Serious: No
  Sender: FDA-Public Use
  Company Number: US-HTU-2018US017525

PATIENT
  Sex: Male

DRUGS (12)
  1. VALCHLOR [Suspect]
     Active Substance: MECHLORETHAMINE
     Indication: CUTANEOUS T-CELL LYMPHOMA
     Dosage: UNK, QOD
     Route: 061
     Dates: start: 201809
  2. TARGRETIN [Concomitant]
     Active Substance: BEXAROTENE
  3. SIMVASTATIN?80 MG [Concomitant]
  4. PRILOSEC OTC 20 MG [Concomitant]
  5. MONTELUKAST SODIUM? 10 MG [Concomitant]
  6. SF 5000 PLUS? 1.1 % [Concomitant]
  7. ATENOLOL? 25 MG [Concomitant]
  8. LOSARTAN POTASSIUM? 25 MG [Concomitant]
  9. METFORMIN HCL? 1000 MG [Concomitant]
  10. FENOFIBRATE? 145MG [Concomitant]
  11. JANUVIA? 50 MG [Concomitant]
  12. VALCHLOR [Suspect]
     Active Substance: MECHLORETHAMINE
     Dosage: TOPICALLY TO AREAS ON FACE AND SCALP DAILY

REACTIONS (6)
  - Skin haemorrhage [Recovering/Resolving]
  - Skin fissures [Recovering/Resolving]
  - Pain of skin [Recovering/Resolving]
  - Skin erosion [Recovering/Resolving]
  - Skin weeping [Recovering/Resolving]
  - Dry skin [Recovering/Resolving]
